FAERS Safety Report 7420523-0 (Version None)
Quarter: 2011Q2

REPORT INFORMATION
  Report Type: 
  Country: None (occurrence: None)
  Receive Date: 20110418
  Receipt Date: 20110413
  Transmission Date: 20111010
  Serious: No
  Sender: FDA-Public Use
  Company Number: US-PFIZER INC-2011081715

PATIENT
  Sex: Female
  Weight: 82.54 kg

DRUGS (4)
  1. NEURONTIN [Suspect]
     Dosage: 100 MG, 1X/DAY
     Route: 048
  2. NEURONTIN [Suspect]
     Indication: NEUROPATHY PERIPHERAL
     Dosage: 300 MG, 1X/DAY
     Route: 048
  3. NEURONTIN [Suspect]
     Dosage: 300 MG, 4X/DAY
     Route: 048
  4. METOPROLOL [Concomitant]
     Indication: HYPERTENSION
     Dosage: 25 MG, 2X/DAY

REACTIONS (1)
  - DRUG INEFFECTIVE [None]
